FAERS Safety Report 6558715-5 (Version None)
Quarter: 2010Q1

REPORT INFORMATION
  Report Type: 
  Country: None (occurrence: None)
  Receive Date: 20100129
  Receipt Date: 20100118
  Transmission Date: 20100710
  Serious: Yes (Hospitalization)
  Sender: FDA-Public Use
  Company Number: FR-PFIZER INC-2010006292

PATIENT
  Age: 43 Year
  Sex: Male

DRUGS (4)
  1. XANAX [Suspect]
     Indication: DEPRESSION
     Dosage: 0.5 MG, 2X/DAY
     Route: 048
  2. XANAX [Suspect]
     Dosage: 0.5 MG IN THE MORNING + 0.25 MG IN THE EVENING
     Route: 048
  3. ESCITALOPRAM (SEROPLEX) [Concomitant]
     Indication: DEPRESSION
     Dosage: 10 MG DAILY
     Route: 048
  4. THERALENE [Concomitant]
     Indication: INSOMNIA
     Dosage: UNK
     Route: 048
     Dates: end: 20091022

REACTIONS (1)
  - EPILEPSY [None]
